FAERS Safety Report 8097529-4 (Version None)
Quarter: 2012Q1

REPORT INFORMATION
  Report Type: 
  Country: None (occurrence: None)
  Receive Date: 20120131
  Receipt Date: 20120127
  Transmission Date: 20120608
  Serious: No
  Sender: FDA-Public Use
  Company Number: US-PFIZER INC-2011197334

PATIENT
  Sex: Male

DRUGS (1)
  1. IBUPROFEN (ADVIL) [Suspect]
     Indication: ARTHRITIS
     Dosage: 800 MG, DAILY
     Route: 048
     Dates: start: 20110801, end: 20110801

REACTIONS (2)
  - URTICARIA [None]
  - ERYTHEMA [None]
